FAERS Safety Report 7341303-0 (Version None)
Quarter: 2011Q1

REPORT INFORMATION
  Report Type: 
  Country: None (occurrence: None)
  Receive Date: 20110309
  Receipt Date: 20110223
  Transmission Date: 20110831
  Serious: Yes (Death)
  Sender: FDA-Public Use
  Company Number: US-ENDO PHARMACEUTICALS INC.-CLOZ20110003

PATIENT
  Sex: Female

DRUGS (2)
  1. CLONAZEPAM [Suspect]
     Indication: DRUG ABUSE
     Dosage: UNK
     Route: 048
     Dates: end: 20100706
  2. PERCOCET [Suspect]
     Indication: MIGRAINE
     Dosage: UNK
     Route: 048
     Dates: end: 20100706

REACTIONS (4)
  - COMPLETED SUICIDE [None]
  - DRUG DEPENDENCE [None]
  - DRUG ABUSE [None]
  - OVERDOSE [None]
